FAERS Safety Report 12458377 (Version 1)
Quarter: 2016Q2

REPORT INFORMATION
  Report Type: Spontaneous
  Country: US (occurrence: US)
  Receive Date: 20160613
  Receipt Date: 20160613
  Transmission Date: 20160815
  Serious: Yes (Death)
  Sender: FDA-Public Use
  Company Number: US-BEH-2016070194

PATIENT
  Sex: Male
  Weight: 68.27 kg

DRUGS (11)
  1. GUAIFENESIN. [Concomitant]
     Active Substance: GUAIFENESIN
  2. ALBUTEROL                          /00139501/ [Concomitant]
     Active Substance: ALBUTEROL
  3. PROTONIX [Concomitant]
     Active Substance: PANTOPRAZOLE SODIUM
  4. ASPIRIN. [Concomitant]
     Active Substance: ASPIRIN
  5. MAGNESIUM [Concomitant]
     Active Substance: MAGNESIUM
  6. ZEMAIRA [Suspect]
     Active Substance: .ALPHA.1-PROTEINASE INHIBITOR HUMAN
     Indication: ALPHA-1 ANTI-TRYPSIN DEFICIENCY
     Dosage: 60 MG/KG, QW
     Route: 065
     Dates: start: 20070725
  7. AZITHROMYCIN                       /00944303/ [Concomitant]
     Active Substance: AZITHROMYCIN ANHYDROUS
     Route: 065
  8. HYDROCHLOROTHIAZIDE. [Concomitant]
     Active Substance: HYDROCHLOROTHIAZIDE
  9. O2                                 /00150301/ [Concomitant]
     Active Substance: OXYGEN
  10. FERROUS SULFATE. [Concomitant]
     Active Substance: FERROUS SULFATE
  11. SIMVASTATIN +PHARMA [Concomitant]

REACTIONS (1)
  - Death [Fatal]
